FAERS Safety Report 8538029-4 (Version None)
Quarter: 2012Q3

REPORT INFORMATION
  Report Type: 
  Country: None (occurrence: None)
  Receive Date: 20120725
  Receipt Date: 20120718
  Transmission Date: 20120928
  Serious: Yes (Hospitalization)
  Sender: FDA-Public Use
  Company Number: DE-ABBOTT-12P-062-0957756-00

PATIENT
  Age: 35 Year
  Sex: Female

DRUGS (4)
  1. HUMIRA [Suspect]
     Indication: PSORIATIC ARTHROPATHY
     Route: 058
     Dates: start: 20080101, end: 20120101
  2. METHOTREXATE [Concomitant]
     Indication: PRODUCT USED FOR UNKNOWN INDICATION
  3. CORTISONE ACETATE [Concomitant]
     Indication: PRODUCT USED FOR UNKNOWN INDICATION
  4. ENBREL [Suspect]
     Indication: PSORIATIC ARTHROPATHY
     Dates: start: 20120101, end: 20120101

REACTIONS (7)
  - UNEVALUABLE EVENT [None]
  - PNEUMOCOCCAL INFECTION [None]
  - DYSAESTHESIA [None]
  - HYPOAESTHESIA [None]
  - DEMYELINATION [None]
  - URINARY TRACT INFECTION [None]
  - LYMPHOMA [None]
